FAERS Safety Report 18574604 (Version 1)
Quarter: 2020Q4

REPORT INFORMATION
  Report Type: Spontaneous
  Country: US (occurrence: US)
  Receive Date: 20201203
  Receipt Date: 20201203
  Transmission Date: 20210114
  Serious: No
  Sender: FDA-Public Use
  Company Number: US-PFIZER INC-2020354151

PATIENT
  Age: 12 Year
  Sex: Male
  Weight: 36.29 kg

DRUGS (2)
  1. GENOTROPIN [Suspect]
     Active Substance: SOMATROPIN
     Indication: HORMONE REPLACEMENT THERAPY
     Dosage: 1.5 MG, 1X/DAY (NIGHTLY)
     Dates: start: 20200908
  2. GENOTROPIN [Suspect]
     Active Substance: SOMATROPIN
     Dosage: 1.5 MG
     Dates: start: 20200918

REACTIONS (5)
  - Device issue [Unknown]
  - Device difficult to use [Unknown]
  - Wrong technique in device usage process [Unknown]
  - Drug dose omission by device [Unknown]
  - Incorrect dose administered by device [Unknown]
